FAERS Safety Report 19747289 (Version 1)
Quarter: 2021Q3

REPORT INFORMATION
  Report Type: Spontaneous
  Country: US (occurrence: US)
  Receive Date: 20210825
  Receipt Date: 20210825
  Transmission Date: 20211014
  Serious: Yes (Other)
  Sender: FDA-Public Use
  Company Number: US-BAUSCH-BL-2021-028380

PATIENT
  Sex: Female

DRUGS (1)
  1. JUBLIA [Suspect]
     Active Substance: EFINACONAZOLE
     Indication: ONYCHOMYCOSIS
     Route: 061
     Dates: start: 202009, end: 20210816

REACTIONS (13)
  - Skin exfoliation [Unknown]
  - Headache [Unknown]
  - Blister [Unknown]
  - Palpitations [Unknown]
  - Abdominal discomfort [Unknown]
  - Decreased appetite [Unknown]
  - Muscle contractions involuntary [Unknown]
  - Pruritus [Unknown]
  - Skin necrosis [Unknown]
  - Gingival recession [Unknown]
  - Salivary hypersecretion [Unknown]
  - Skin discolouration [Unknown]
  - Application site vesicles [Unknown]

NARRATIVE: CASE EVENT DATE: 202009
